FAERS Safety Report 19264722 (Version 1)
Quarter: 2021Q2

REPORT INFORMATION
  Report Type: Spontaneous
  Country: US (occurrence: US)
  Receive Date: 20210517
  Receipt Date: 20210517
  Transmission Date: 20210717
  Serious: Yes (Hospitalization)
  Sender: FDA-Public Use
  Company Number: US-APOTEX-2021AP011699

PATIENT
  Age: 79 Year
  Sex: Male

DRUGS (2)
  1. LITHIUM CARBONATE. [Suspect]
     Active Substance: LITHIUM CARBONATE
     Indication: PRODUCT USED FOR UNKNOWN INDICATION
     Dosage: UNK
     Route: 065
  2. LITHIUM CARBONATE. [Suspect]
     Active Substance: LITHIUM CARBONATE
     Dosage: UNK; RESTARTED ON REDUCED DOSE
     Route: 065

REACTIONS (10)
  - Mania [Recovering/Resolving]
  - Mood swings [Recovering/Resolving]
  - Salivary hypersecretion [Recovered/Resolved]
  - Muscular weakness [Recovering/Resolving]
  - Tangentiality [Recovering/Resolving]
  - Tremor [Recovered/Resolved]
  - Agitation [Recovered/Resolved]
  - Toxicity to various agents [Recovering/Resolving]
  - Grandiosity [Recovering/Resolving]
  - Confusional state [Recovering/Resolving]
